FAERS Safety Report 14199205 (Version 1)
Quarter: 2017Q4

REPORT INFORMATION
  Report Type: Spontaneous
  Country: US (occurrence: US)
  Receive Date: 20171117
  Receipt Date: 20171117
  Transmission Date: 20180321
  Serious: Yes (Other)
  Sender: FDA-Public Use
  Company Number: US-JNJFOC-20171109593

PATIENT
  Age: 50 Year
  Sex: Female
  Weight: 122.93 kg

DRUGS (5)
  1. INVOKAMET XR [Suspect]
     Active Substance: CANAGLIFLOZIN\METFORMIN HYDROCHLORIDE
     Indication: TYPE 2 DIABETES MELLITUS
     Dosage: 150/1000 MG; TWO TABLETS ONCE DAILY
     Route: 048
     Dates: start: 201707, end: 20171104
  2. LISINOPRIL. [Concomitant]
     Active Substance: LISINOPRIL
     Indication: HYPERTENSION
     Route: 048
  3. LEVOTHYROXINE. [Concomitant]
     Active Substance: LEVOTHYROXINE
     Indication: THYROIDECTOMY
     Route: 065
     Dates: start: 2004
  4. TRIAMTERENE AND HYDROCHLOROTHIAZIDE [Concomitant]
     Active Substance: HYDROCHLOROTHIAZIDE\TRIAMTERENE
     Indication: DIURETIC THERAPY
     Route: 065
  5. DESITIN [Suspect]
     Active Substance: ZINC OXIDE
     Indication: INFECTION
     Route: 061
     Dates: start: 2017

REACTIONS (8)
  - Swelling face [Not Recovered/Not Resolved]
  - Fungal infection [Unknown]
  - Off label use [Unknown]
  - Unevaluable event [Not Recovered/Not Resolved]
  - Weight decreased [Unknown]
  - Back pain [Unknown]
  - Urinary tract infection [Unknown]
  - Pelvic pain [Unknown]

NARRATIVE: CASE EVENT DATE: 2017
